FAERS Safety Report 13445532 (Version 1)
Quarter: 2017Q2

REPORT INFORMATION
  Report Type: Spontaneous
  Country: US (occurrence: US)
  Receive Date: 20170415
  Receipt Date: 20170415
  Transmission Date: 20170830
  Serious: No
  Sender: FDA-Public Use
  Company Number: US-BION-005813

PATIENT
  Age: 80 Year
  Sex: Female
  Weight: 72.57 kg

DRUGS (1)
  1. ALEVE [Suspect]
     Active Substance: NAPROXEN SODIUM
     Indication: ARTHRALGIA
     Dosage: TWO ALEVE LIQUID GELS EVERY MORNING DAILY FOR ONE YEAR
     Route: 048

REACTIONS (5)
  - Product solubility abnormal [Unknown]
  - Product taste abnormal [Unknown]
  - Product physical consistency issue [Unknown]
  - Poor quality drug administered [Not Recovered/Not Resolved]
  - Incorrect drug administration duration [Not Recovered/Not Resolved]
